FAERS Safety Report 6609983-2 (Version None)
Quarter: 2010Q1

REPORT INFORMATION
  Report Type: 
  Country: None (occurrence: None)
  Receive Date: 20100216
  Receipt Date: 20090205
  Transmission Date: 20100710
  Serious: Yes (Other)
  Sender: FDA-Public Use
  Company Number: MC200900037

PATIENT
  Sex: Female

DRUGS (1)
  1. ANGIOMAX [Suspect]
     Indication: STENT PLACEMENT

REACTIONS (1)
  - THROMBOSIS [None]
